FAERS Safety Report 19242640 (Version 2)
Quarter: 2021Q2

REPORT INFORMATION
  Report Type: Report from Study
  Country: None (occurrence: CZ)
  Receive Date: 20210510
  Receipt Date: 20210614
  Transmission Date: 20210717
  Serious: Yes (Death, Hospitalization, Other)
  Sender: FDA-Public Use
  Company Number: CZ-ABBVIE-21K-217-3892770-00

PATIENT
  Age: 42 Year
  Sex: Male

DRUGS (3)
  1. SKYRIZI [Suspect]
     Active Substance: RISANKIZUMAB-RZAA
     Indication: PSORIASIS
     Dosage: WEEK 0
     Route: 058
     Dates: start: 20190611, end: 20190611
  2. SKYRIZI [Suspect]
     Active Substance: RISANKIZUMAB-RZAA
     Dosage: WEEK 4
     Route: 058
     Dates: start: 201907, end: 201907
  3. SKYRIZI [Suspect]
     Active Substance: RISANKIZUMAB-RZAA
     Route: 058
     Dates: start: 201910, end: 20210301

REACTIONS (5)
  - COVID-19 pneumonia [Fatal]
  - Coronavirus infection [Not Recovered/Not Resolved]
  - Respiratory failure [Fatal]
  - Hepatic steatosis [Unknown]
  - Diverticulum intestinal [Unknown]

NARRATIVE: CASE EVENT DATE: 20210211
